FAERS Safety Report 7733369-0 (Version None)
Quarter: 2011Q3

REPORT INFORMATION
  Report Type: 
  Country: None (occurrence: None)
  Receive Date: 20110907
  Receipt Date: 20110829
  Transmission Date: 20111222
  Serious: Yes (Hospitalization, Other)
  Sender: FDA-Public Use
  Company Number: US-BAYER-2011-080013

PATIENT
  Age: 35 Year
  Sex: Female

DRUGS (2)
  1. MIRENA [Suspect]
     Dosage: UNK
     Dates: start: 20060701, end: 20110819
  2. MIRENA [Suspect]
     Dosage: UNK
     Dates: start: 20060901, end: 20110819

REACTIONS (5)
  - DEVICE DISLOCATION [None]
  - ULCER [None]
  - ABDOMINAL PAIN [None]
  - FEELING ABNORMAL [None]
  - GASTRIC DISORDER [None]
